FAERS Safety Report 4622318-X (Version None)
Quarter: 2005Q1

REPORT INFORMATION
  Report Type: 
  Country: None (occurrence: None)
  Receive Date: 20050330
  Receipt Date: 20050318
  Transmission Date: 20050727
  Serious: Yes (Other)
  Sender: FDA-Public Use
  Company Number: JP-BRISTOL-MYERS SQUIBB COMPANY-12905675

PATIENT
  Age: 78 Year
  Sex: Female

DRUGS (1)
  1. MAXIPIME [Suspect]
     Indication: PNEUMONIA
     Route: 041
     Dates: start: 20050221, end: 20050225

REACTIONS (1)
  - HEPATIC FUNCTION ABNORMAL [None]
